FAERS Safety Report 7452082-0 (Version None)
Quarter: 2011Q2

REPORT INFORMATION
  Report Type: 
  Country: None (occurrence: None)
  Receive Date: 20110502
  Receipt Date: 20110428
  Transmission Date: 20111010
  Serious: Yes (Other)
  Sender: FDA-Public Use
  Company Number: DE-ELI_LILLY_AND_COMPANY-DE201104005722

PATIENT
  Age: 53 Year
  Sex: Female

DRUGS (1)
  1. BYETTA [Suspect]
     Dosage: 5 UG, BID
     Route: 058
     Dates: start: 20110407, end: 20110408

REACTIONS (3)
  - SYNCOPE [None]
  - DIZZINESS [None]
  - ABDOMINAL PAIN UPPER [None]
